FAERS Safety Report 24982780 (Version 2)
Quarter: 2025Q1

REPORT INFORMATION
  Report Type: Spontaneous
  Country: AT (occurrence: None)
  Receive Date: 20250218
  Receipt Date: 20250313
  Transmission Date: 20250409
  Serious: Yes (Other)
  Sender: INCYTE
  Company Number: AT-002147023-NVSC2025AT024828

PATIENT
  Age: 10 Year

DRUGS (1)
  1. RUXOLITINIB [Suspect]
     Active Substance: RUXOLITINIB
     Indication: Chronic graft versus host disease in skin
     Route: 065

REACTIONS (1)
  - Thrombocytopenia [Unknown]
